FAERS Safety Report 11104428 (Version 1)
Quarter: 2015Q2

REPORT INFORMATION
  Report Type: Spontaneous
  Country: JP (occurrence: JP)
  Receive Date: 20150511
  Receipt Date: 20150511
  Transmission Date: 20150821
  Serious: Yes (Other)
  Sender: FDA-Public Use
  Company Number: JP-PFIZER INC-2015138904

PATIENT
  Age: 91 Year
  Sex: Male
  Weight: 39 kg

DRUGS (1)
  1. ZYVOX [Suspect]
     Active Substance: LINEZOLID
     Indication: SOFT TISSUE INFECTION
     Dosage: 1200 MG, DAILY
     Route: 041
     Dates: start: 20150411, end: 20150420

REACTIONS (2)
  - Platelet count decreased [Unknown]
  - Intestinal obstruction [Unknown]

NARRATIVE: CASE EVENT DATE: 20150420
